FAERS Safety Report 7729732-4 (Version None)
Quarter: 2011Q3

REPORT INFORMATION
  Report Type: 
  Country: None (occurrence: None)
  Receive Date: 20110906
  Receipt Date: 20110829
  Transmission Date: 20111222
  Serious: Yes (Death, Other)
  Sender: FDA-Public Use
  Company Number: NL-ROCHE-574029

PATIENT

DRUGS (3)
  1. TRASTUZUMAB [Suspect]
     Route: 065
  2. TRASTUZUMAB [Suspect]
     Dosage: LOADING DOSE
     Route: 065
  3. DOCETAXEL [Suspect]
     Route: 065

REACTIONS (14)
  - INTERSTITIAL LUNG DISEASE [None]
  - DIARRHOEA [None]
  - FEBRILE INFECTION [None]
  - VOMITING [None]
  - FEBRILE NEUTROPENIA [None]
  - OEDEMA PERIPHERAL [None]
  - SYNCOPE [None]
  - EJECTION FRACTION DECREASED [None]
  - PERIPHERAL SENSORY NEUROPATHY [None]
  - FATIGUE [None]
  - PULMONARY EMBOLISM [None]
  - NAUSEA [None]
  - HYPERSENSITIVITY [None]
  - STOMATITIS [None]
